FAERS Safety Report 8348139-2 (Version None)
Quarter: 2012Q2

REPORT INFORMATION
  Report Type: 
  Country: None (occurrence: None)
  Receive Date: 20120509
  Receipt Date: 20120427
  Transmission Date: 20120825
  Serious: Yes (Hospitalization)
  Sender: FDA-Public Use
  Company Number: US-PFIZER INC-2012067676

PATIENT
  Age: 38 Year
  Sex: Male
  Weight: 77.2 kg

DRUGS (5)
  1. SULFASALAZINE [Suspect]
     Indication: POST PROCEDURAL DIARRHOEA
     Dosage: TWO 500MG TABLETS PO TWICE DAILY (MORNING AND EVENING)
     Route: 048
     Dates: start: 20120124, end: 20120308
  2. THERAPEUTIC RADIOPHARMACEUTICALS [Concomitant]
     Indication: NEOPLASM
     Dosage: TOTAL DOSE OF 56 GY
     Dates: start: 20120123, end: 20120229
  3. FLUOROURACIL [Concomitant]
     Indication: RECTAL CANCER
  4. FLUOROURACIL [Concomitant]
     Indication: NEOPLASM
     Dosage: UNK
     Dates: start: 20120123, end: 20120224
  5. THERAPEUTIC RADIOPHARMACEUTICALS [Concomitant]
     Indication: RECTAL CANCER

REACTIONS (1)
  - MELAENA [None]
